FAERS Safety Report 10150692 (Version 1)
Quarter: 2014Q2

REPORT INFORMATION
  Report Type: Spontaneous
  Country: CA (occurrence: CA)
  Receive Date: 20140502
  Receipt Date: 20140502
  Transmission Date: 20141212
  Serious: Yes (Death)
  Sender: FDA-Public Use
  Company Number: CHPA2014CA006047

PATIENT
  Sex: Female

DRUGS (1)
  1. KERI MOISTURIZING BATHOIL SOFTLY SCENTED [Suspect]
     Indication: DRY SKIN

REACTIONS (1)
  - Death [Fatal]
